FAERS Safety Report 7364143-5 (Version None)
Quarter: 2011Q1

REPORT INFORMATION
  Report Type: 
  Country: None (occurrence: None)
  Receive Date: 20110321
  Receipt Date: 20110316
  Transmission Date: 20110831
  Serious: Yes (Life-Threatening, Other)
  Sender: FDA-Public Use
  Company Number: PHHY2009CA18917

PATIENT
  Sex: Male

DRUGS (2)
  1. SANDOSTATIN LAR [Suspect]
     Indication: NEUROENDOCRINE TUMOUR
     Dosage: 40 MG, QMO
     Route: 030
     Dates: start: 20081126, end: 20100826
  2. SANDOSTATIN LAR [Suspect]
     Dosage: 30 MG, QMO
     Route: 030
     Dates: end: 20100907

REACTIONS (13)
  - HEART RATE INCREASED [None]
  - NEOPLASM MALIGNANT [None]
  - FEELING ABNORMAL [None]
  - HYPERHIDROSIS [None]
  - JOINT INJURY [None]
  - ABDOMINAL DISCOMFORT [None]
  - BLOOD PRESSURE INCREASED [None]
  - LOCALISED INFECTION [None]
  - PAIN IN EXTREMITY [None]
  - FLATULENCE [None]
  - FATIGUE [None]
  - PYREXIA [None]
  - MALAISE [None]
